FAERS Safety Report 19446265 (Version 2)
Quarter: 2021Q3

REPORT INFORMATION
  Report Type: Spontaneous
  Country: DE (occurrence: DE)
  Receive Date: 20210622
  Receipt Date: 20210906
  Transmission Date: 20211014
  Serious: Yes (Hospitalization, Other)
  Sender: FDA-Public Use
  Company Number: DE-JNJFOC-20210645004

PATIENT
  Age: 80 Year
  Sex: Male

DRUGS (4)
  1. BISOPROLOL [Concomitant]
     Active Substance: BISOPROLOL
     Dosage: 0.5 MG
  2. RIVAROXABAN [Suspect]
     Active Substance: RIVAROXABAN
     Indication: ATRIAL FIBRILLATION
     Dosage: 20 MG
     Route: 048
     Dates: start: 2016, end: 202107
  3. RIVAROXABAN [Suspect]
     Active Substance: RIVAROXABAN
     Dosage: 15 MG
     Route: 048
     Dates: end: 2021
  4. TEBONIN [GINKGO BILOBA EXTRACT] [Concomitant]
     Active Substance: GINKGO

REACTIONS (6)
  - Incorrect dose administered [Unknown]
  - Renal failure [Unknown]
  - Limb injury [Unknown]
  - Product use issue [Unknown]
  - Impaired healing [Unknown]
  - Epistaxis [Unknown]

NARRATIVE: CASE EVENT DATE: 2021
